FAERS Safety Report 4377350-0 (Version None)
Quarter: 2004Q2

REPORT INFORMATION
  Report Type: 
  Country: None (occurrence: None)
  Receive Date: 20040609
  Receipt Date: 20040329
  Transmission Date: 20050107
  Serious: No
  Sender: FDA-Public Use
  Company Number: 2004206910US

PATIENT
  Age: 74 Year
  Sex: Female

DRUGS (4)
  1. BEXTRA [Suspect]
     Indication: ARTHRITIS
     Dosage: 10 MG QD
  2. LIPITOR [Suspect]
  3. LOTENSIN [Concomitant]
  4. TRICOR [Concomitant]

REACTIONS (2)
  - MUSCLE CRAMP [None]
  - POLLAKIURIA [None]
